FAERS Safety Report 9168153 (Version 1)
Quarter: 2013Q1

REPORT INFORMATION
  Report Type: Spontaneous
  Country: US (occurrence: US)
  Receive Date: 20130318
  Receipt Date: 20130318
  Transmission Date: 20140127
  Serious: Yes (Hospitalization)
  Sender: FDA-Public Use
  Company Number: US-ELI_LILLY_AND_COMPANY-US201303002508

PATIENT
  Sex: Female

DRUGS (5)
  1. FORTEO [Suspect]
     Indication: OSTEOPOROSIS
     Dosage: 20 UG, QD
     Dates: start: 201201
  2. FORTEO [Suspect]
     Dosage: 20 UG, QD
     Dates: start: 201201
  3. COUMADIN [Concomitant]
     Dosage: UNK
  4. LIPITOR [Concomitant]
     Dosage: UNK
  5. SOTALOL [Concomitant]
     Dosage: 40 MG, BID

REACTIONS (1)
  - Heart rate increased [Unknown]
